FAERS Safety Report 15481222 (Version 1)
Quarter: 2018Q4

REPORT INFORMATION
  Report Type: Spontaneous
  Country: KE (occurrence: KE)
  Receive Date: 20181010
  Receipt Date: 20181010
  Transmission Date: 20190205
  Serious: Yes (Other)
  Sender: FDA-Public Use
  Company Number: KE-HETERO CORPORATE-HET2018KE01038

PATIENT
  Sex: Female

DRUGS (1)
  1. EFAVIRENZ+LAMIVUDINE+TENOFOVIR [Suspect]
     Active Substance: EFAVIRENZ\LAMIVUDINE\TENOFOVIR DISOPROXIL FUMARATE
     Indication: PRODUCT USED FOR UNKNOWN INDICATION
     Dosage: UNK
     Route: 065

REACTIONS (8)
  - Headache [Unknown]
  - Hallucination [Unknown]
  - Rash [Unknown]
  - Pruritus generalised [Unknown]
  - Dizziness [Unknown]
  - Nightmare [Unknown]
  - Abortion threatened [Unknown]
  - Somnolence [Unknown]
